FAERS Safety Report 8940364 (Version 1)
Quarter: 2012Q4

REPORT INFORMATION
  Report Type: Report from Study
  Country: US (occurrence: US)
  Receive Date: 20121130
  Receipt Date: 20121130
  Transmission Date: 20130627
  Serious: Yes (Hospitalization)
  Sender: FDA-Public Use
  Company Number: US-BAXTER-2012BAX025387

PATIENT
  Age: 39 Year
  Sex: Female
  Weight: 80.77 kg

DRUGS (4)
  1. CYTOXAN? (CYCLOPHOSPHAMIDE FOR INJECTION, USP) [Suspect]
     Indication: METASTATIC BREAST CANCER
     Route: 042
     Dates: start: 20081010
  2. DOCETAXEL [Suspect]
     Indication: METASTATIC BREAST CANCER
     Route: 042
     Dates: start: 20081010
  3. PERCOCET [Suspect]
     Indication: PAIN
     Dosage: 5/325
     Dates: start: 20080904
  4. PERCOCET [Suspect]
     Dates: start: 20081020

REACTIONS (1)
  - Pain [Recovered/Resolved]
